FAERS Safety Report 9993268 (Version 1)
Quarter: 2014Q1

REPORT INFORMATION
  Report Type: Report from Study
  Country: MX (occurrence: MX)
  Receive Date: 20140310
  Receipt Date: 20140310
  Transmission Date: 20141002
  Serious: Yes (Other)
  Sender: FDA-Public Use
  Company Number: PHHY2014MX028978

PATIENT
  Age: 79 Year
  Sex: Female
  Weight: 73 kg

DRUGS (6)
  1. DIOVAN [Suspect]
     Indication: HYPERTENSION
     Dosage: 1 TABLET (80 MG), DAILY
     Route: 048
     Dates: end: 201306
  2. DIOVAN [Suspect]
     Dosage: 1 TABLET (80 MG), DAILY
     Route: 048
  3. MICARDIS PLUS [Concomitant]
     Indication: HYPERTENSION
     Dosage: 1 UKN, DAILY
     Route: 048
     Dates: start: 201306
  4. METOPROLOL [Concomitant]
     Indication: HYPERTENSION
     Dosage: 1 UKN, DAILY
     Route: 048
     Dates: start: 201306
  5. PRAVASTATINA [Concomitant]
     Indication: HYPERTENSION
     Dosage: 1 UKN, DAILY
     Route: 048
     Dates: start: 2006
  6. DAFLON                             /01026201/ [Concomitant]
     Indication: VENOUS INSUFFICIENCY
     Dosage: 1 UKN, DAILY
     Route: 048
     Dates: start: 2006

REACTIONS (8)
  - Breast cancer [Not Recovered/Not Resolved]
  - Cataract [Not Recovered/Not Resolved]
  - Glucose tolerance impaired [Not Recovered/Not Resolved]
  - Haematuria [Not Recovered/Not Resolved]
  - Torticollis [Recovered/Resolved]
  - Neck pain [Recovering/Resolving]
  - Movement disorder [Recovered/Resolved]
  - Lymphoedema [Not Recovered/Not Resolved]
